FAERS Safety Report 22240255 (Version 4)
Quarter: 2023Q2

REPORT INFORMATION
  Report Type: Report from Study
  Country: JP (occurrence: JP)
  Receive Date: 20230421
  Receipt Date: 20230605
  Transmission Date: 20230722
  Serious: Yes (Other)
  Sender: FDA-Public Use
  Company Number: JP-JNJFOC-20230443210

PATIENT

DRUGS (1)
  1. SIMPONI [Suspect]
     Active Substance: GOLIMUMAB
     Indication: Rheumatoid arthritis
     Dosage: DOSE UNKNOWN
     Route: 058

REACTIONS (5)
  - Pneumonia [Unknown]
  - Epstein-Barr virus infection reactivation [Unknown]
  - Skin cancer [Unknown]
  - Systemic lupus erythematosus [Unknown]
  - Drug ineffective [Unknown]
